FAERS Safety Report 9890636 (Version 2)
Quarter: 2014Q2

REPORT INFORMATION
  Report Type: Spontaneous
  Country: US (occurrence: US)
  Receive Date: 20140212
  Receipt Date: 20140428
  Transmission Date: 20141212
  Serious: Yes (Hospitalization)
  Sender: FDA-Public Use
  Company Number: US-BAYER-2014-021402

PATIENT
  Age: 43 Year
  Sex: Female

DRUGS (12)
  1. RESVERATROL [Concomitant]
  2. YAZ [Suspect]
  3. YASMIN [Suspect]
  4. Z-PAK [Concomitant]
     Dosage: UNK
     Dates: start: 20100821
  5. LASIX [Concomitant]
     Dosage: 40 MG, QD
     Dates: start: 20100821
  6. POTASSIUM [Concomitant]
     Dosage: 20 MEQ, QD
     Dates: start: 20100821
  7. TRIAMTERENE AND HYDROCHLOROTHIAZIDE [Concomitant]
     Dosage: DAILY
     Dates: start: 20100821
  8. ROCEPHALIN [Concomitant]
  9. CELEBREX [Concomitant]
     Dosage: 200 MG, UNK
  10. DYAZIDE [Concomitant]
  11. FUROSEMIDE [Concomitant]
  12. GLUCOSAMINE [Concomitant]

REACTIONS (2)
  - Pulmonary embolism [None]
  - Deep vein thrombosis [None]
